FAERS Safety Report 5990200-1 (Version None)
Quarter: 2008Q4

REPORT INFORMATION
  Report Type: 
  Country: None (occurrence: None)
  Receive Date: 20081209
  Receipt Date: 20081126
  Transmission Date: 20090506
  Serious: Yes (Hospitalization)
  Sender: FDA-Public Use
  Company Number: 005038

PATIENT
  Age: 68 Year
  Sex: Male
  Weight: 77 kg

DRUGS (12)
  1. PLETAL [Suspect]
     Indication: CEREBRAL INFARCTION
     Dosage: 100 MG, BID
     Route: 048
     Dates: start: 20081028, end: 20081104
  2. TOFRANIL [Concomitant]
  3. DEPAS (ETIZOLAM) [Concomitant]
  4. ALINAMN-F (FURSULTIAMINE) [Concomitant]
  5. IDOMETHINE (INDOMETACIN) [Concomitant]
  6. STICK ZENOL (METHYL SALICYLATE_GLYCYRRHETIC) [Concomitant]
  7. NORVASC [Concomitant]
  8. SILECE (FLUNITRAZEPAM) [Concomitant]
  9. LOSARTAN POTASSIUM [Concomitant]
  10. LAMISIL [Concomitant]
  11. PL (NON-PYRINE COLD PREPARATION) [Concomitant]
  12. ALESION (EPINASTINE HYDROCHLORIDE) [Concomitant]

REACTIONS (8)
  - ATRIAL FIBRILLATION [None]
  - BLOOD PRESSURE INCREASED [None]
  - CARDIAC FAILURE [None]
  - CARDIOMEGALY [None]
  - DILATATION VENTRICULAR [None]
  - PLEURAL EFFUSION [None]
  - PULMONARY CONGESTION [None]
  - TACHYCARDIA [None]
